FAERS Safety Report 8889386 (Version 1)
Quarter: 2012Q4

REPORT INFORMATION
  Report Type: Spontaneous
  Country: US (occurrence: None)
  Receive Date: 20121102
  Receipt Date: 20121102
  Transmission Date: 20130627
  Serious: Yes (Other)
  Sender: FDA-Public Use
  Company Number: None

PATIENT
  Age: 35 Year
  Sex: Female
  Weight: 86.18 kg

DRUGS (1)
  1. DEPO PROVERA [Suspect]
     Indication: BIRTH CONTROL
     Route: 030
     Dates: start: 20111101, end: 20111101

REACTIONS (4)
  - Mood swings [None]
  - Depression [None]
  - Suicidal ideation [None]
  - Menorrhagia [None]
